FAERS Safety Report 7702509-1 (Version None)
Quarter: 2011Q3

REPORT INFORMATION
  Report Type: 
  Country: None (occurrence: None)
  Receive Date: 20110823
  Receipt Date: 20110815
  Transmission Date: 20111222
  Serious: No
  Sender: FDA-Public Use
  Company Number: US-BIOGENIDEC-2011BI000514

PATIENT
  Age: 43 Year
  Sex: Female

DRUGS (3)
  1. AVONEX [Concomitant]
     Indication: MULTIPLE SCLEROSIS
     Route: 030
  2. TYSABRI [Suspect]
     Indication: MULTIPLE SCLEROSIS
     Route: 042
     Dates: start: 20101210
  3. AMPYRA [Concomitant]
     Indication: GAIT DISTURBANCE

REACTIONS (17)
  - PERIPHERAL COLDNESS [None]
  - CYSTITIS [None]
  - EXCORIATION [None]
  - GAIT DISTURBANCE [None]
  - VISUAL IMPAIRMENT [None]
  - INJECTION SITE SWELLING [None]
  - HEADACHE [None]
  - FATIGUE [None]
  - HYPOAESTHESIA [None]
  - MUSCULAR WEAKNESS [None]
  - PAIN IN EXTREMITY [None]
  - DRUG DOSE OMISSION [None]
  - FURUNCLE [None]
  - FALL [None]
  - URINARY INCONTINENCE [None]
  - INFLUENZA [None]
  - DRUG EFFECT DECREASED [None]
